FAERS Safety Report 22146743 (Version 1)
Quarter: 2023Q1

REPORT INFORMATION
  Report Type: Spontaneous
  Country: US (occurrence: None)
  Receive Date: 20230327
  Receipt Date: 20230327
  Transmission Date: 20230417
  Serious: Yes (unspecified)
  Sender: FDA-Public Use
  Company Number: None

PATIENT
  Age: 36 Year
  Sex: Female
  Weight: 67.5 kg

DRUGS (1)
  1. THERATEARS LUBRICANT EYE [Suspect]
     Active Substance: CARBOXYMETHYLCELLULOSE SODIUM
     Indication: Ocular hyperaemia
     Dosage: OTHER QUANTITY : 1 SINGLE-USE VIAL;?FREQUENCY : AS NEEDED;?
     Route: 047
     Dates: start: 20230325, end: 20230325

REACTIONS (2)
  - Swelling of eyelid [None]
  - Eye discharge [None]

NARRATIVE: CASE EVENT DATE: 20230325
